FAERS Safety Report 15541216 (Version 1)
Quarter: 2018Q4

REPORT INFORMATION
  Report Type: Spontaneous
  Country: US (occurrence: US)
  Receive Date: 20181023
  Receipt Date: 20181023
  Transmission Date: 20190205
  Serious: No
  Sender: FDA-Public Use
  Company Number: US-MYLANLABS-2018M1074841

PATIENT
  Sex: Female
  Weight: 73 kg

DRUGS (7)
  1. LIDOCAINE PATCH [Suspect]
     Active Substance: LIDOCAINE
     Dosage: UNK
     Route: 065
  2. ATENOLOL. [Concomitant]
     Active Substance: ATENOLOL
     Indication: HYPERTENSION
     Dosage: UNK
     Route: 065
  3. IBUPROFEN. [Concomitant]
     Active Substance: IBUPROFEN
     Indication: PAIN
     Dosage: UNK
     Route: 065
  4. ADVIL (MEFENAMIC ACID) [Concomitant]
     Active Substance: MEFENAMIC ACID
     Indication: PAIN
     Dosage: UNK
     Route: 065
  5. FLEXERIL [Concomitant]
     Active Substance: CYCLOBENZAPRINE HYDROCHLORIDE
     Indication: MUSCLE SPASMS
     Dosage: UNK
     Route: 065
  6. LIDOCAINE PATCH [Suspect]
     Active Substance: LIDOCAINE
     Indication: MUSCLE SPASMS
     Dosage: 5 %, BID
     Route: 003
     Dates: start: 20181007
  7. SIMVASTATIN. [Concomitant]
     Active Substance: SIMVASTATIN
     Indication: BLOOD CHOLESTEROL INCREASED
     Dosage: UNK
     Route: 065

REACTIONS (4)
  - Product adhesion issue [Not Recovered/Not Resolved]
  - Back pain [Not Recovered/Not Resolved]
  - Off label use [Not Recovered/Not Resolved]
  - Product quality issue [Unknown]
